FAERS Safety Report 16260041 (Version 3)
Quarter: 2024Q1

REPORT INFORMATION
  Report Type: Spontaneous
  Country: AU (occurrence: AU)
  Receive Date: 20190501
  Receipt Date: 20240125
  Transmission Date: 20240410
  Serious: Yes (Hospitalization, Other)
  Sender: FDA-Public Use
  Company Number: AU-MYLANLABS-2019M1035808

PATIENT
  Age: 36 Year
  Sex: Female

DRUGS (7)
  1. SYNTOCINON [Suspect]
     Active Substance: OXYTOCIN
     Indication: Labour induction
     Dosage: UNK; TRIAL OF INDUCTION OF LABOUR WITH A SYNTOCINON INFUSION WAS COMMENCED
     Route: 042
  2. SYNTOCINON [Suspect]
     Active Substance: OXYTOCIN
     Indication: Uterine atony
     Dosage: 5 U, UNK; FIVE UNITS INTRAVENOUSLY ADMINISTERED IN DIVIDED DOSE
     Route: 042
  3. SYNTOCINON [Suspect]
     Active Substance: OXYTOCIN
     Dosage: 40 U, UNK; 40 LU SYNTONCINON INFUSION WAS IN PROGRESS
     Route: 042
  4. CEFAZOLIN [Suspect]
     Active Substance: CEFAZOLIN
     Indication: Antibiotic prophylaxis
     Dosage: 2 GRAM
     Route: 042
  5. FENTANYL [Suspect]
     Active Substance: FENTANYL\FENTANYL CITRATE
     Indication: Anaesthesia
     Dosage: UNK; SPINAL BLOCK
     Route: 065
  6. ERGONOVINE MALEATE [Suspect]
     Active Substance: ERGONOVINE MALEATE
     Indication: Uterine atony
     Dosage: 250 INTERNATIONAL UNIT
     Route: 042
  7. BUPIVACAINE [Suspect]
     Active Substance: BUPIVACAINE
     Indication: Spinal anaesthesia
     Dosage: UNK; SUBARACHNOID BLOCK
     Route: 065

REACTIONS (8)
  - Atrial fibrillation [Recovered/Resolved]
  - Tachycardia [Recovered/Resolved]
  - Nausea [Unknown]
  - Feeling hot [Unknown]
  - Head discomfort [Unknown]
  - Discomfort [Unknown]
  - Maternal exposure during delivery [Recovered/Resolved]
  - Normal newborn [Recovered/Resolved]
